FAERS Safety Report 9001072 (Version 1)
Quarter: 2012Q4

REPORT INFORMATION
  Report Type: Spontaneous
  Country: US (occurrence: None)
  Receive Date: 20121226
  Receipt Date: 20121226
  Transmission Date: 20130627
  Serious: Yes (Death, Hospitalization)
  Sender: FDA-Public Use
  Company Number: ACO_33387_2012

PATIENT
  Age: 52 Year
  Sex: Female

DRUGS (3)
  1. AMPYRA (DALFAMPRIDINE) TABLET, 10MG [Suspect]
     Indication: MULTIPLE SCLEROSIS
     Dates: start: 20110330, end: 20121201
  2. BACLOFEN (BACLOFEN) [Concomitant]
  3. ZOLPIDEM (ZOLPIDEM TARTRATE) [Concomitant]

REACTIONS (2)
  - Cardiomyopathy [None]
  - Heart rate decreased [None]
